FAERS Safety Report 9392209 (Version 2)
Quarter: 2013Q3

REPORT INFORMATION
  Report Type: Report from Study
  Country: US (occurrence: US)
  Receive Date: 20130710
  Receipt Date: 20130828
  Transmission Date: 20140515
  Serious: Yes (Death)
  Sender: FDA-Public Use
  Company Number: US-ROCHE-1246942

PATIENT
  Sex: Male

DRUGS (2)
  1. ACTIVASE [Suspect]
     Indication: PULMONARY EMBOLISM
     Route: 040
  2. ACTIVASE [Suspect]
     Route: 042

REACTIONS (1)
  - Cardiac arrest [Fatal]
